FAERS Safety Report 6850364-4 (Version None)
Quarter: 2010Q3

REPORT INFORMATION
  Report Type: 
  Country: None (occurrence: None)
  Receive Date: 20100716
  Receipt Date: 20071227
  Transmission Date: 20110219
  Serious: No
  Sender: FDA-Public Use
  Company Number: US-PFIZER INC-2007087543

PATIENT
  Sex: Female
  Weight: 73.6 kg

DRUGS (2)
  1. CHANTIX [Suspect]
     Indication: SMOKING CESSATION THERAPY
     Dosage: QD: EVERYDAY
     Dates: start: 20070916, end: 20070923
  2. INDERAL [Concomitant]
     Indication: HYPERTENSION

REACTIONS (5)
  - DRUG INEFFECTIVE [None]
  - MALAISE [None]
  - NAUSEA [None]
  - TOBACCO USER [None]
  - VOMITING [None]
